FAERS Safety Report 7622016-4 (Version None)
Quarter: 2011Q3

REPORT INFORMATION
  Report Type: 
  Country: None (occurrence: None)
  Receive Date: 20110720
  Receipt Date: 20101118
  Transmission Date: 20111222
  Serious: Yes (Other)
  Sender: FDA-Public Use
  Company Number: US-BAYER-201033607NA

PATIENT
  Age: 21 Year
  Sex: Female
  Weight: 88.889 kg

DRUGS (26)
  1. VITAMIN D [Concomitant]
     Dosage: UNK
     Route: 048
     Dates: start: 20090123
  2. NUVARING [Concomitant]
     Dosage: UNK
     Dates: start: 20070901, end: 20080101
  3. AMOXICILLIN AND CLAVULANATE POTASSIUM [Concomitant]
  4. CLONIDINE [Concomitant]
  5. AZITHROMYCIN [Concomitant]
  6. BENZOYL PEROXIDE [Concomitant]
  7. ALBUTEROL SULFATE AUTOHALER [Concomitant]
     Dosage: UNK
     Dates: start: 20050101
  8. LUNESTA [Concomitant]
  9. ADVAIR DISKUS 100/50 [Concomitant]
     Dosage: UNK
     Dates: start: 20020101
  10. ALBUTEROL SULFATE AUTOHALER [Concomitant]
     Dosage: UNK
     Dates: start: 20020101
  11. FOCALIN [Concomitant]
  12. ZOFRAN [Concomitant]
  13. HYDROCODONE BITARTRATE AND ACETAMINOPHEN [Concomitant]
  14. YASMIN [Suspect]
     Indication: CONTRACEPTION
     Route: 048
     Dates: start: 20060101, end: 20070901
  15. OXYCODONE HCL AND ACETAMINOPHEN [Concomitant]
     Dosage: UNK
     Route: 048
     Dates: start: 20090128
  16. ADVAIR DISKUS 100/50 [Concomitant]
     Dosage: UNK
     Dates: start: 20050101
  17. MIRENA [Concomitant]
     Dosage: UNK
     Dates: start: 20080118
  18. FLUOXETINE [Concomitant]
  19. TRAZODONE [Concomitant]
  20. WELLBUTRIN [Concomitant]
  21. YASMIN [Suspect]
     Indication: ACNE
  22. DIFFERIN [Concomitant]
     Dosage: UNK
     Route: 061
     Dates: start: 20090113
  23. RETIN-A [Concomitant]
  24. MORPHINE [Concomitant]
  25. IBUPROFEN [Concomitant]
  26. ABILIFY [Concomitant]

REACTIONS (10)
  - CHOLESTEROSIS [None]
  - CHOLELITHIASIS [None]
  - VOMITING [None]
  - ABDOMINAL PAIN UPPER [None]
  - DIARRHOEA [None]
  - BILIARY COLIC [None]
  - ABDOMINAL PAIN [None]
  - CHOLECYSTITIS CHRONIC [None]
  - NAUSEA [None]
  - POST CHOLECYSTECTOMY SYNDROME [None]
